FAERS Safety Report 25735127 (Version 5)
Quarter: 2025Q4

REPORT INFORMATION
  Report Type: Report from Study
  Country: CA (occurrence: CA)
  Receive Date: 20250828
  Receipt Date: 20251203
  Transmission Date: 20260118
  Serious: Yes (Other)
  Sender: BIOGEN
  Company Number: CA-BIOGEN-2025BI01322150

PATIENT
  Age: 51 Year
  Sex: Female

DRUGS (2)
  1. TYSABRI [Suspect]
     Active Substance: NATALIZUMAB
     Indication: Multiple sclerosis
     Dates: start: 20230324
  2. TYSABRI [Suspect]
     Active Substance: NATALIZUMAB
     Dates: start: 20230324, end: 20250829

REACTIONS (3)
  - Anaemia [Not Recovered/Not Resolved]
  - Immunosuppression [Not Recovered/Not Resolved]
  - Gastrointestinal disorder [Unknown]
